FAERS Safety Report 11150586 (Version 1)
Quarter: 2015Q2

REPORT INFORMATION
  Report Type: Spontaneous
  Country: US (occurrence: US)
  Receive Date: 20150601
  Receipt Date: 20150601
  Transmission Date: 20150821
  Serious: Yes (Death)
  Sender: FDA-Public Use
  Company Number: US-UCBSA-2015017384

PATIENT
  Age: 74 Year
  Sex: Male

DRUGS (2)
  1. CIMZIA [Suspect]
     Active Substance: CERTOLIZUMAB PEGOL
     Indication: RHEUMATOID ARTHRITIS
     Dosage: 200 MG, MONTHLY (QM)
     Route: 058
     Dates: start: 20110531, end: 20141230
  2. PROLIA [Suspect]
     Active Substance: DENOSUMAB
     Indication: RHEUMATOID ARTHRITIS
     Dosage: 60 MG/ML, EV 6 MONTHS
     Route: 058
     Dates: start: 20140109, end: 20141230

REACTIONS (1)
  - Death [Fatal]

NARRATIVE: CASE EVENT DATE: 20150320
